FAERS Safety Report 22191103 (Version 69)
Quarter: 2024Q4

REPORT INFORMATION
  Report Type: Report from Study
  Country: CN (occurrence: CN)
  Receive Date: 20230410
  Receipt Date: 20241021
  Transmission Date: 20250115
  Serious: Yes (Life-Threatening, Hospitalization)
  Sender: SANOFI AVENTIS
  Company Number: CN-SA-2023SA102008

PATIENT
  Age: 53 Year
  Sex: Male
  Weight: 68 kg

DRUGS (74)
  1. ISATUXIMAB [Suspect]
     Active Substance: ISATUXIMAB
     Indication: Plasma cell myeloma refractory
     Dosage: 700 MG
     Route: 042
     Dates: start: 20230322, end: 20230322
  2. ISATUXIMAB [Suspect]
     Active Substance: ISATUXIMAB
     Dosage: 700 MG
     Route: 042
     Dates: start: 20230329, end: 20230329
  3. ISATUXIMAB [Suspect]
     Active Substance: ISATUXIMAB
     Dosage: 380.8 MG
     Route: 042
     Dates: start: 20230628, end: 20230628
  4. ISATUXIMAB [Suspect]
     Active Substance: ISATUXIMAB
     Dosage: 299.2 MG
     Route: 042
     Dates: start: 20230628, end: 20230628
  5. ISATUXIMAB [Suspect]
     Active Substance: ISATUXIMAB
     Dosage: 680 MG
     Route: 042
     Dates: start: 20230712, end: 20230712
  6. ISATUXIMAB [Suspect]
     Active Substance: ISATUXIMAB
     Dosage: 660 MG
     Route: 042
     Dates: start: 20230726, end: 20230726
  7. ISATUXIMAB [Suspect]
     Active Substance: ISATUXIMAB
     Dosage: 680 MG
     Route: 042
     Dates: start: 20230809, end: 20230809
  8. ISATUXIMAB [Suspect]
     Active Substance: ISATUXIMAB
     Dosage: 660 MG
     Route: 042
     Dates: start: 20230823, end: 20230823
  9. ISATUXIMAB [Suspect]
     Active Substance: ISATUXIMAB
     Dosage: 660 MG
     Route: 042
     Dates: start: 20230906, end: 20230906
  10. ISATUXIMAB [Suspect]
     Active Substance: ISATUXIMAB
     Dosage: 680 MG
     Route: 042
     Dates: start: 20230920, end: 20230920
  11. ISATUXIMAB [Suspect]
     Active Substance: ISATUXIMAB
     Dosage: 660 MG
     Route: 042
     Dates: start: 20231101, end: 20231101
  12. ISATUXIMAB [Suspect]
     Active Substance: ISATUXIMAB
     Dosage: 660 MG
     Route: 042
     Dates: start: 20231115, end: 20231115
  13. ISATUXIMAB [Suspect]
     Active Substance: ISATUXIMAB
     Dosage: 660 MG
     Dates: start: 20231129, end: 20231129
  14. ISATUXIMAB [Suspect]
     Active Substance: ISATUXIMAB
     Dosage: 640 MG
     Route: 042
     Dates: start: 20231004, end: 20231004
  15. ISATUXIMAB [Suspect]
     Active Substance: ISATUXIMAB
     Dosage: 640 MG
     Route: 042
     Dates: start: 20231018, end: 20231018
  16. ISATUXIMAB [Suspect]
     Active Substance: ISATUXIMAB
     Dosage: 620 MG
     Route: 042
     Dates: start: 20231213, end: 20231213
  17. ISATUXIMAB [Suspect]
     Active Substance: ISATUXIMAB
     Dosage: 640 MG
     Route: 042
     Dates: start: 20231227, end: 20231227
  18. ISATUXIMAB [Suspect]
     Active Substance: ISATUXIMAB
     Dosage: 640 MG
     Route: 042
     Dates: start: 20240110, end: 20240110
  19. ISATUXIMAB [Suspect]
     Active Substance: ISATUXIMAB
     Dosage: 660 MG
     Route: 042
     Dates: start: 20240124, end: 20240124
  20. ISATUXIMAB [Suspect]
     Active Substance: ISATUXIMAB
     Dosage: 640 MG
     Route: 042
     Dates: start: 20240221, end: 20240221
  21. ISATUXIMAB [Suspect]
     Active Substance: ISATUXIMAB
     Dosage: 660 MG
     Route: 042
     Dates: start: 20240306, end: 20240306
  22. ISATUXIMAB [Suspect]
     Active Substance: ISATUXIMAB
     Dosage: 680 MG
     Route: 042
     Dates: start: 20240320, end: 20240320
  23. POMALIDOMIDE [Suspect]
     Active Substance: POMALIDOMIDE
     Indication: Plasma cell myeloma refractory
     Dosage: 4 MG
     Route: 048
     Dates: start: 20230322, end: 20230328
  24. POMALIDOMIDE [Suspect]
     Active Substance: POMALIDOMIDE
     Dosage: 3 MG
     Route: 048
     Dates: start: 20230331, end: 20230403
  25. POMALIDOMIDE [Suspect]
     Active Substance: POMALIDOMIDE
     Dosage: 4 MG
     Route: 048
     Dates: start: 20230531, end: 20230620
  26. POMALIDOMIDE [Suspect]
     Active Substance: POMALIDOMIDE
     Dosage: 4 MG
     Route: 048
     Dates: start: 20230628, end: 20230718
  27. POMALIDOMIDE [Suspect]
     Active Substance: POMALIDOMIDE
     Dosage: 4 MG
     Route: 048
     Dates: start: 20230726, end: 20230815
  28. POMALIDOMIDE [Suspect]
     Active Substance: POMALIDOMIDE
     Dosage: 4 MG
     Route: 048
     Dates: start: 20230823, end: 20230912
  29. POMALIDOMIDE [Suspect]
     Active Substance: POMALIDOMIDE
     Dosage: 4 MG
     Route: 048
     Dates: start: 20230920, end: 20231010
  30. POMALIDOMIDE [Suspect]
     Active Substance: POMALIDOMIDE
     Dosage: 4 MG
     Route: 048
     Dates: start: 20231018, end: 20231107
  31. POMALIDOMIDE [Suspect]
     Active Substance: POMALIDOMIDE
     Dosage: 4 MG
     Route: 048
     Dates: start: 20231115, end: 20231205
  32. POMALIDOMIDE [Suspect]
     Active Substance: POMALIDOMIDE
     Dosage: 4 MG
     Route: 048
     Dates: start: 20231213, end: 20240102
  33. POMALIDOMIDE [Suspect]
     Active Substance: POMALIDOMIDE
     Dosage: 4 MG
     Route: 048
     Dates: start: 20230213, end: 20240102
  34. POMALIDOMIDE [Suspect]
     Active Substance: POMALIDOMIDE
     Dosage: 4 MG
     Route: 048
     Dates: start: 20240110, end: 20240130
  35. POMALIDOMIDE [Suspect]
     Active Substance: POMALIDOMIDE
     Dosage: 4 MG
     Route: 048
     Dates: start: 20240207, end: 20240227
  36. POMALIDOMIDE [Suspect]
     Active Substance: POMALIDOMIDE
     Dosage: 4 MG
     Route: 048
     Dates: start: 20240306, end: 20240326
  37. DEXAMETHASONE [Suspect]
     Active Substance: DEXAMETHASONE
     Indication: Plasma cell myeloma refractory
     Dosage: 40 MG
     Route: 042
     Dates: start: 20230322, end: 20230322
  38. DEXAMETHASONE [Suspect]
     Active Substance: DEXAMETHASONE
     Dosage: 40 MG
     Route: 042
     Dates: start: 20230329, end: 20230329
  39. DEXAMETHASONE [Suspect]
     Active Substance: DEXAMETHASONE
     Dosage: 40 MG
     Route: 048
     Dates: start: 20230705, end: 20230705
  40. DEXAMETHASONE [Suspect]
     Active Substance: DEXAMETHASONE
     Dosage: 40 MG
     Route: 042
     Dates: start: 20230712, end: 20230712
  41. DEXAMETHASONE [Suspect]
     Active Substance: DEXAMETHASONE
     Dosage: 40 MG
     Route: 048
     Dates: start: 20230719, end: 20230719
  42. DEXAMETHASONE [Suspect]
     Active Substance: DEXAMETHASONE
     Dosage: 40 MG
     Route: 042
     Dates: start: 20230726, end: 20230726
  43. DEXAMETHASONE [Suspect]
     Active Substance: DEXAMETHASONE
     Dosage: 40 MG
     Route: 048
     Dates: start: 20230802, end: 20230802
  44. DEXAMETHASONE [Suspect]
     Active Substance: DEXAMETHASONE
     Dosage: 40 MG
     Route: 042
     Dates: start: 20230809, end: 20230809
  45. DEXAMETHASONE [Suspect]
     Active Substance: DEXAMETHASONE
     Dosage: 40 MG
     Route: 048
     Dates: start: 20230816, end: 20230816
  46. DEXAMETHASONE [Suspect]
     Active Substance: DEXAMETHASONE
     Dosage: 40 MG
     Route: 042
     Dates: start: 20230823, end: 20230823
  47. DEXAMETHASONE [Suspect]
     Active Substance: DEXAMETHASONE
     Dosage: 40 MG
     Route: 048
     Dates: start: 20230830, end: 20230830
  48. DEXAMETHASONE [Suspect]
     Active Substance: DEXAMETHASONE
     Dosage: 40 MG
     Route: 042
     Dates: start: 20230906, end: 20230906
  49. DEXAMETHASONE [Suspect]
     Active Substance: DEXAMETHASONE
     Dosage: 40 MG
     Route: 048
     Dates: start: 20230913, end: 20230913
  50. DEXAMETHASONE [Suspect]
     Active Substance: DEXAMETHASONE
     Dosage: 40 MG
     Route: 042
     Dates: start: 20231004, end: 20231004
  51. DEXAMETHASONE [Suspect]
     Active Substance: DEXAMETHASONE
     Dosage: 40 MG
     Route: 042
     Dates: start: 20231011, end: 20231011
  52. DEXAMETHASONE [Suspect]
     Active Substance: DEXAMETHASONE
     Dosage: 40 MG
     Route: 042
     Dates: start: 20231018, end: 20231018
  53. DEXAMETHASONE [Suspect]
     Active Substance: DEXAMETHASONE
     Dosage: 40 MG
     Route: 048
     Dates: start: 20231025, end: 20231025
  54. DEXAMETHASONE [Suspect]
     Active Substance: DEXAMETHASONE
     Dosage: 40 MG
     Route: 042
     Dates: start: 20231101, end: 20231101
  55. DEXAMETHASONE [Suspect]
     Active Substance: DEXAMETHASONE
     Dosage: 40 MG
     Route: 048
     Dates: start: 20231108, end: 20231108
  56. DEXAMETHASONE [Suspect]
     Active Substance: DEXAMETHASONE
     Dosage: 40 MG
     Route: 042
     Dates: start: 20231213, end: 20231213
  57. DEXAMETHASONE [Suspect]
     Active Substance: DEXAMETHASONE
     Dosage: 40 MG
     Route: 048
     Dates: start: 20231220, end: 20231220
  58. DEXAMETHASONE [Suspect]
     Active Substance: DEXAMETHASONE
     Dosage: 40 MG
     Route: 042
     Dates: start: 20231227, end: 20231227
  59. DEXAMETHASONE [Suspect]
     Active Substance: DEXAMETHASONE
     Dosage: 40 MG
     Route: 048
     Dates: start: 20240103, end: 20240103
  60. DEXAMETHASONE [Suspect]
     Active Substance: DEXAMETHASONE
     Dosage: 40 MG
     Route: 042
     Dates: start: 20240110, end: 20240110
  61. DEXAMETHASONE [Suspect]
     Active Substance: DEXAMETHASONE
     Dosage: 40 MG
     Route: 042
     Dates: start: 20240124, end: 20240124
  62. DEXAMETHASONE [Suspect]
     Active Substance: DEXAMETHASONE
     Dosage: 40 MG
     Route: 048
     Dates: start: 20240131, end: 20240131
  63. DEXAMETHASONE [Suspect]
     Active Substance: DEXAMETHASONE
     Dosage: 40 MG
     Route: 042
     Dates: start: 20240207, end: 20240207
  64. DEXAMETHASONE [Suspect]
     Active Substance: DEXAMETHASONE
     Dosage: 40 MG
     Route: 048
     Dates: start: 20240214, end: 20240214
  65. DEXAMETHASONE [Suspect]
     Active Substance: DEXAMETHASONE
     Dosage: 40 MG
     Route: 042
     Dates: start: 20240221, end: 20240221
  66. DEXAMETHASONE [Suspect]
     Active Substance: DEXAMETHASONE
     Dosage: 40 MG
     Route: 048
     Dates: start: 20240228, end: 20240228
  67. DEXAMETHASONE [Suspect]
     Active Substance: DEXAMETHASONE
     Dosage: 40 MG
     Route: 042
     Dates: start: 20240306, end: 20240306
  68. DEXAMETHASONE [Suspect]
     Active Substance: DEXAMETHASONE
     Dosage: 40 MG
     Route: 048
     Dates: start: 20240313, end: 20240313
  69. DEXAMETHASONE [Suspect]
     Active Substance: DEXAMETHASONE
     Dosage: 40 MG
     Route: 042
     Dates: start: 20240320, end: 20240320
  70. DEXAMETHASONE [Suspect]
     Active Substance: DEXAMETHASONE
     Dosage: 40 MG
     Route: 048
     Dates: start: 20240327, end: 20240327
  71. DEXAMETHASONE [Suspect]
     Active Substance: DEXAMETHASONE
     Dosage: 40 MG
     Route: 042
     Dates: start: 20231115, end: 20231115
  72. DEXAMETHASONE [Suspect]
     Active Substance: DEXAMETHASONE
     Dosage: 40 MG
     Route: 048
     Dates: start: 20231122, end: 20231122
  73. DEXAMETHASONE [Suspect]
     Active Substance: DEXAMETHASONE
     Dosage: 40 MG
     Route: 042
     Dates: start: 20231129, end: 20231129
  74. DEXAMETHASONE [Suspect]
     Active Substance: DEXAMETHASONE
     Dosage: 40 MG
     Route: 048
     Dates: start: 20231206, end: 20231206

REACTIONS (55)
  - Sepsis [Recovered/Resolved]
  - Platelet count decreased [Recovered/Resolved]
  - Neutrophil count decreased [Recovered/Resolved]
  - Pneumonia [Not Recovered/Not Resolved]
  - Neutrophil count decreased [Recovered/Resolved]
  - Hepatic function abnormal [Recovered/Resolved]
  - Neutrophil count decreased [Recovered/Resolved]
  - White blood cell count decreased [Recovered/Resolved]
  - Infusion related reaction [Recovered/Resolved]
  - Neutrophil count decreased [Recovered/Resolved]
  - Neutrophil count decreased [Recovered/Resolved]
  - Hypocalcaemia [Recovered/Resolved]
  - Hypokalaemia [Recovered/Resolved]
  - Hypocalcaemia [Recovered/Resolved]
  - Hypoproteinaemia [Recovered/Resolved]
  - White blood cell count decreased [Recovered/Resolved]
  - Hypokalaemia [Recovered/Resolved]
  - Renal failure [Not Recovered/Not Resolved]
  - Hypoproteinaemia [Recovered/Resolved]
  - Hypokalaemia [Recovered/Resolved]
  - Hypokalaemia [Recovered/Resolved]
  - Neutrophil count decreased [Recovered/Resolved]
  - White blood cell count decreased [Recovered/Resolved]
  - Platelet count decreased [Recovered/Resolved]
  - Anaemia [Recovered/Resolved]
  - Hypokalaemia [Recovered/Resolved]
  - White blood cell count decreased [Recovered/Resolved]
  - Platelet count decreased [Recovered/Resolved]
  - Hepatic failure [Recovered/Resolved]
  - Type 2 diabetes mellitus [Not Recovered/Not Resolved]
  - Hepatic function abnormal [Recovered/Resolved]
  - Neutrophil count decreased [Recovered/Resolved]
  - Hypoproteinaemia [Recovered/Resolved]
  - Hypoproteinaemia [Not Recovered/Not Resolved]
  - Hypokalaemia [Recovered/Resolved]
  - Neutrophil count decreased [Recovered/Resolved]
  - White blood cell count decreased [Recovered/Resolved]
  - Neutrophil count decreased [Recovered/Resolved]
  - Hypocalcaemia [Recovered/Resolved]
  - Platelet count decreased [Recovered/Resolved]
  - White blood cell count decreased [Recovered/Resolved]
  - White blood cell count decreased [Recovered/Resolved]
  - White blood cell count decreased [Recovered/Resolved]
  - White blood cell count decreased [Recovered/Resolved]
  - Hypokalaemia [Recovered/Resolved]
  - Hypokalaemia [Recovered/Resolved]
  - Hypokalaemia [Recovered/Resolved]
  - Neutrophil count decreased [Recovered/Resolved]
  - Weight decreased [Recovered/Resolved]
  - Platelet count decreased [Recovered/Resolved]
  - Neutrophil count decreased [Recovered/Resolved]
  - Diarrhoea [Recovered/Resolved]
  - Hepatic function abnormal [Recovered/Resolved]
  - Anaemia [Recovered/Resolved]
  - Neutrophil count decreased [Recovered/Resolved]

NARRATIVE: CASE EVENT DATE: 20230325
